FAERS Safety Report 4925152-6 (Version None)
Quarter: 2006Q1

REPORT INFORMATION
  Report Type: 
  Country: None (occurrence: None)
  Receive Date: 20060228
  Receipt Date: 20051208
  Transmission Date: 20060701
  Serious: No
  Sender: FDA-Public Use
  Company Number: US-GLAXOSMITHKLINE-A0585120A

PATIENT
  Sex: Female

DRUGS (4)
  1. AVODART [Suspect]
     Indication: BENIGN PROSTATIC HYPERPLASIA
     Dosage: .5MG PER DAY
     Route: 048
  2. TOPROL [Concomitant]
  3. LOTREL [Concomitant]
  4. DIOVAN [Concomitant]

REACTIONS (1)
  - LIBIDO DECREASED [None]
